FAERS Safety Report 15186258 (Version 1)
Quarter: 2018Q3

REPORT INFORMATION
  Report Type: Report from Study
  Country: US (occurrence: US)
  Receive Date: 20180723
  Receipt Date: 20180723
  Transmission Date: 20181010
  Serious: No
  Sender: FDA-Public Use
  Company Number: US-EXELIXIS-CABO-18012302

PATIENT
  Sex: Male

DRUGS (2)
  1. CABOMETYX [Suspect]
     Active Substance: CABOZANTINIB S-MALATE
     Indication: LUNG NEOPLASM MALIGNANT
     Dosage: 40 MG, QD (ON EMPTY STOMACH)
     Route: 048
     Dates: start: 201802
  2. OSIMERTINIB. [Concomitant]
     Active Substance: OSIMERTINIB
     Dosage: UNK

REACTIONS (6)
  - Blood creatinine increased [Unknown]
  - Oral pain [Recovered/Resolved]
  - Vomiting [Recovered/Resolved]
  - Dysgeusia [Unknown]
  - Off label use [Unknown]
  - Nausea [Unknown]
